FAERS Safety Report 6312194-1 (Version None)
Quarter: 2009Q3

REPORT INFORMATION
  Report Type: 
  Country: None (occurrence: None)
  Receive Date: 20090813
  Receipt Date: 20090813
  Transmission Date: 20100115
  Serious: Yes (Life-Threatening, Disabling, Other)
  Sender: FDA-Public Use
  Company Number: None

PATIENT
  Sex: Female
  Weight: 58.6 kg

DRUGS (3)
  1. PROTOPIC [Suspect]
     Indication: ECZEMA
     Dosage: PROTOPIC ONCE A DAY PUT ON SKIN RASH
     Dates: start: 19930101, end: 19940101
  2. PROTOPIC [Suspect]
     Indication: RASH
     Dosage: PROTOPIC ONCE A DAY PUT ON SKIN RASH
     Dates: start: 19930101, end: 19940101
  3. ELIDIOL OINTMENT [Suspect]
     Dosage: ELIDIOL ONCE A DAY PUT ON SKIN RASH
     Dates: start: 19930101, end: 19940101

REACTIONS (3)
  - DYSPHAGIA [None]
  - PHARYNGEAL OEDEMA [None]
  - T-CELL LYMPHOMA [None]
